FAERS Safety Report 14125352 (Version 3)
Quarter: 2018Q1

REPORT INFORMATION
  Report Type: Report from Study
  Country: FR (occurrence: FR)
  Receive Date: 20171025
  Receipt Date: 20180110
  Transmission Date: 20180508
  Serious: Yes (Hospitalization)
  Sender: FDA-Public Use
  Company Number: PHHO2017FR014564

PATIENT
  Age: 47 Year
  Sex: Male
  Weight: 100 kg

DRUGS (7)
  1. PAZOPANIB [Suspect]
     Active Substance: PAZOPANIB
     Indication: GLIOBLASTOMA
     Dosage: 600 MG, QD
     Route: 048
     Dates: start: 20170807, end: 20171012
  2. DEPAKINE CRONO [Concomitant]
     Active Substance: VALPROIC ACID
     Dosage: 750 MG, BID
     Route: 065
     Dates: start: 20171013
  3. TEMOZOLOMIDE. [Suspect]
     Active Substance: TEMOZOLOMIDE
     Indication: GLIOBLASTOMA
     Dosage: 200 MG/M2, QD (5 DAYS EVERY 4 WEEKS)
     Route: 048
     Dates: start: 20170807
  4. URBANYL [Concomitant]
     Active Substance: CLOBAZAM
     Indication: PRODUCT USED FOR UNKNOWN INDICATION
     Dosage: 5 MG, QD
     Route: 065
  5. DEPAKINE CRONO [Concomitant]
     Active Substance: VALPROIC ACID
     Indication: CLONIC CONVULSION
     Dosage: 500 MG, BID
     Route: 065
     Dates: start: 20170327
  6. RAMIPRIL. [Concomitant]
     Active Substance: RAMIPRIL
     Indication: PRODUCT USED FOR UNKNOWN INDICATION
     Dosage: 5 MG, QD IN THE MORNING
     Route: 065
     Dates: start: 20170803
  7. PANTOPRAZOLE [Concomitant]
     Active Substance: PANTOPRAZOLE
     Indication: PRODUCT USED FOR UNKNOWN INDICATION
     Dosage: 20 MG, QD, IN THE EVENING
     Route: 065
     Dates: start: 2017

REACTIONS (1)
  - Epilepsy [Recovered/Resolved]

NARRATIVE: CASE EVENT DATE: 20171012
